FAERS Safety Report 7637052-1 (Version None)
Quarter: 2011Q3

REPORT INFORMATION
  Report Type: 
  Country: None (occurrence: None)
  Receive Date: 20110726
  Receipt Date: 20110721
  Transmission Date: 20111222
  Serious: Yes (Other)
  Sender: FDA-Public Use
  Company Number: FR-BAYER-2011-064052

PATIENT
  Age: 64 Year
  Sex: Male

DRUGS (9)
  1. ULTRAVIST 150 [Suspect]
     Indication: ANGIOGRAM
     Dosage: 120 ML, ONCE
     Route: 042
     Dates: start: 20110617
  2. HEXAQUINE [Concomitant]
  3. ALLOPURINOL [Concomitant]
  4. COZAAR [Concomitant]
  5. ENALAPRIL MALEATE [Concomitant]
  6. LASIX [Concomitant]
  7. MIRCERA [Concomitant]
  8. FUMAFER [Concomitant]
  9. ZOCOR [Concomitant]

REACTIONS (2)
  - SIALOADENITIS [None]
  - APTYALISM [None]
